FAERS Safety Report 11114595 (Version 1)
Quarter: 2015Q2

REPORT INFORMATION
  Report Type: Spontaneous
  Country: DE (occurrence: DE)
  Receive Date: 20150515
  Receipt Date: 20150515
  Transmission Date: 20150821
  Serious: Yes (Other)
  Sender: FDA-Public Use
  Company Number: DE-AUROBINDO-AUR-APL-2015-04219

PATIENT
  Age: 33 Year
  Sex: Female
  Weight: 68 kg

DRUGS (4)
  1. SUMATRIPTAN 100MG [Suspect]
     Active Substance: SUMATRIPTAN
     Indication: MIGRAINE
     Dosage: 100 MG, DAILY
     Route: 048
  2. NOVALGIN [Suspect]
     Active Substance: METAMIZOLE SODIUM
     Indication: MIGRAINE
     Dosage: 1000 MG, DAILY
     Route: 048
  3. FOLSAEURE [Concomitant]
     Active Substance: FOLIC ACID
     Indication: PROPHYLAXIS OF NEURAL TUBE DEFECT
     Dosage: UNK
     Route: 048
  4. PARACETAMOL [Concomitant]
     Active Substance: ACETAMINOPHEN
     Indication: MIGRAINE
     Dosage: 1000 MG, DAILY
     Route: 048

REACTIONS (3)
  - Stillbirth [Unknown]
  - Maternal exposure during pregnancy [Unknown]
  - Foetal death [Recovered/Resolved]
